FAERS Safety Report 11246720 (Version 5)
Quarter: 2015Q4

REPORT INFORMATION
  Report Type: Report from Study
  Country: PT (occurrence: PT)
  Receive Date: 20150708
  Receipt Date: 20151009
  Transmission Date: 20160304
  Serious: Yes (Hospitalization, Disabling)
  Sender: FDA-Public Use
  Company Number: PHHY2014PT153151

PATIENT
  Age: 45 Year
  Sex: Female

DRUGS (1)
  1. GILENYA [Suspect]
     Active Substance: FINGOLIMOD HYDROCHLORIDE
     Indication: MULTIPLE SCLEROSIS
     Dosage: 0.5 MG, UNK
     Route: 048
     Dates: start: 20150408

REACTIONS (31)
  - Hypoaesthesia [Not Recovered/Not Resolved]
  - Dysphagia [Not Recovered/Not Resolved]
  - Arthralgia [Not Recovered/Not Resolved]
  - Headache [Recovering/Resolving]
  - Hypotension [Recovering/Resolving]
  - Choking [Not Recovered/Not Resolved]
  - Vaginal haemorrhage [Unknown]
  - Nasopharyngitis [Not Recovered/Not Resolved]
  - Fall [Not Recovered/Not Resolved]
  - Platelet count decreased [Not Recovered/Not Resolved]
  - Cough [Not Recovered/Not Resolved]
  - Uterine haemorrhage [Unknown]
  - Multiple sclerosis relapse [Recovering/Resolving]
  - Speech disorder [Not Recovered/Not Resolved]
  - Chest pain [Not Recovered/Not Resolved]
  - Aphasia [Recovering/Resolving]
  - Dyspnoea [Not Recovered/Not Resolved]
  - Fatigue [Not Recovered/Not Resolved]
  - Cystitis [Not Recovered/Not Resolved]
  - Urinary tract infection [Recovered/Resolved]
  - Limb discomfort [Recovering/Resolving]
  - Ovarian disorder [Unknown]
  - Abdominal pain [Not Recovered/Not Resolved]
  - Haematoma [Recovering/Resolving]
  - Dysuria [Not Recovered/Not Resolved]
  - Muscular weakness [Not Recovered/Not Resolved]
  - Head injury [Unknown]
  - Dizziness [Recovering/Resolving]
  - Vision blurred [Recovering/Resolving]
  - Pollakiuria [Not Recovered/Not Resolved]
  - Bladder disorder [Not Recovered/Not Resolved]

NARRATIVE: CASE EVENT DATE: 20150408
